FAERS Safety Report 5261098-4 (Version None)
Quarter: 2007Q1

REPORT INFORMATION
  Report Type: 
  Country: None (occurrence: None)
  Receive Date: 20070309
  Receipt Date: 20070305
  Transmission Date: 20070707
  Serious: Yes (Other)
  Sender: FDA-Public Use
  Company Number: US-ELI_LILLY_AND_COMPANY-US200703001266

PATIENT
  Sex: Female

DRUGS (2)
  1. HUMULIN N [Suspect]
     Indication: DIABETES MELLITUS INSULIN-DEPENDENT
     Dosage: 24 U, 2/D
  2. COUMADIN [Concomitant]
     Dosage: UNK, DAILY (1/D)

REACTIONS (5)
  - COLLAPSE OF LUNG [None]
  - DIALYSIS [None]
  - HEART VALVE REPLACEMENT [None]
  - MEMORY IMPAIRMENT [None]
  - PARALYSIS [None]
